FAERS Safety Report 21190519 (Version 1)
Quarter: 2022Q3

REPORT INFORMATION
  Report Type: Spontaneous
  Country: US (occurrence: US)
  Receive Date: 20220809
  Receipt Date: 20220809
  Transmission Date: 20221026
  Serious: No
  Sender: FDA-Public Use
  Company Number: US-009507513-2207USA003752

PATIENT
  Age: 71 Year
  Sex: Female

DRUGS (4)
  1. NOXAFIL [Interacting]
     Active Substance: POSACONAZOLE
     Indication: Antifungal prophylaxis
     Dosage: UNK
     Route: 048
  2. VENETOCLAX [Interacting]
     Active Substance: VENETOCLAX
     Indication: Chemotherapy
     Dosage: 100 MILLIGRAM, DAILY (REDUCED DOSE DUE TO CONCOMITANT POSACONAZOLE TREATMENT), CYCLICAL
  3. VENETOCLAX [Interacting]
     Active Substance: VENETOCLAX
     Dosage: 50 MG DAILY 21 OUT OF 28-DAY CYCLE (DOSE ADJUSTED DUE TO DRUG INTERACTION WITH POSACONAZOLE)
  4. DECITABINE [Concomitant]
     Active Substance: DECITABINE
     Indication: Chemotherapy
     Dosage: 20 MILLIGRAM/SQ. METER FOR 5 DAYS IN A 35-DAY CYCLE

REACTIONS (1)
  - Labelled drug-drug interaction issue [Unknown]
